FAERS Safety Report 23798465 (Version 1)
Quarter: 2024Q2

REPORT INFORMATION
  Report Type: Spontaneous
  Country: CH (occurrence: CH)
  Receive Date: 20240430
  Receipt Date: 20240430
  Transmission Date: 20240716
  Serious: Yes (Death, Life-Threatening, Hospitalization)
  Sender: FDA-Public Use
  Company Number: None

PATIENT
  Sex: Male
  Weight: 3 kg

DRUGS (15)
  1. HUMATIN [Suspect]
     Active Substance: PAROMOMYCIN SULFATE
     Dosage: 500 MG, 3X/DAY
     Route: 064
     Dates: start: 20230509, end: 20230515
  2. CIPROFLOXACIN [Suspect]
     Active Substance: CIPROFLOXACIN
     Dosage: 500 MG, 2X/DAY
     Route: 064
     Dates: start: 20230408, end: 20230410
  3. METRONIDAZOLE [Suspect]
     Active Substance: METRONIDAZOLE
     Indication: Infection parasitic
     Dosage: 500 MG, 3X/DAY
     Route: 064
     Dates: start: 20230429, end: 20230508
  4. OXAZEPAM [Suspect]
     Active Substance: OXAZEPAM
     Dosage: AS NECESSARY (4 TAB.)
     Route: 064
     Dates: start: 20230406, end: 20230415
  5. OXAZEPAM [Suspect]
     Active Substance: OXAZEPAM
     Dosage: 30 MG, 1X/DAY
     Route: 064
     Dates: start: 20230416, end: 20230424
  6. OXAZEPAM [Suspect]
     Active Substance: OXAZEPAM
     Dosage: 15 MG
     Route: 064
     Dates: start: 20230425, end: 20230430
  7. OXAZEPAM [Suspect]
     Active Substance: OXAZEPAM
     Dosage: 15 MG AS NECESSARY
     Route: 064
     Dates: start: 20230525
  8. METOCLOPRAMIDE [Suspect]
     Active Substance: METOCLOPRAMIDE
     Dosage: 10 MG
     Route: 064
     Dates: start: 20230401, end: 20230415
  9. HERBALS [Suspect]
     Active Substance: HERBALS
     Dosage: UNK
     Route: 064
     Dates: start: 20230401, end: 20230415
  10. ESOMEPRAZOLE [Suspect]
     Active Substance: ESOMEPRAZOLE
     Dosage: 40 MG, 1X/DAY
     Route: 064
     Dates: start: 20230415, end: 20230424
  11. PERENTEROL [Suspect]
     Active Substance: SACCHAROMYCES CEREVISIAE
     Dosage: UNK
     Route: 064
     Dates: start: 20230408, end: 20230410
  12. CAFFEINE\MECLIZINE MONOHYDROCHLORIDE\PYRIDOXINE HYDROCHLORIDE [Suspect]
     Active Substance: CAFFEINE\MECLIZINE MONOHYDROCHLORIDE\PYRIDOXINE HYDROCHLORIDE
     Dosage: IN TOTAL 1 TAB
     Route: 064
     Dates: start: 20230330, end: 20230330
  13. SERTRALINE [Suspect]
     Active Substance: SERTRALINE HYDROCHLORIDE
     Dosage: 50 MG, 1X/DAY
     Route: 064
     Dates: start: 20230525
  14. NITROFURANTOIN [Suspect]
     Active Substance: NITROFURANTOIN
     Dosage: 100 MG, 1X/DAY (2 WEEKS POSTPARTUM)
     Route: 064
     Dates: start: 20231108
  15. ASPIRIN [Suspect]
     Active Substance: ASPIRIN
     Route: 064
     Dates: start: 2023, end: 20231213

REACTIONS (12)
  - Foetal exposure during pregnancy [Fatal]
  - Neonatal asphyxia [Fatal]
  - Hypoxic ischaemic encephalopathy neonatal [Fatal]
  - Multiple organ dysfunction syndrome [Fatal]
  - Hypovolaemic shock [Fatal]
  - Shock haemorrhagic [Fatal]
  - Foetal anaemia [Fatal]
  - Haemorrhage foetal [Fatal]
  - Foetal hypokinesia [Fatal]
  - Single umbilical artery [Fatal]
  - Subarachnoid haemorrhage neonatal [Fatal]
  - Premature baby [Fatal]

NARRATIVE: CASE EVENT DATE: 20230418
